FAERS Safety Report 9322063 (Version 2)
Quarter: 2013Q3

REPORT INFORMATION
  Report Type: Spontaneous
  Country: US (occurrence: None)
  Receive Date: 20130529
  Receipt Date: 20130716
  Transmission Date: 20140515
  Serious: Yes (Hospitalization)
  Sender: FDA-Public Use
  Company Number: 2013P1006275

PATIENT
  Age: 73 Year
  Sex: Female

DRUGS (2)
  1. INFUMORPH [Suspect]
     Indication: PAIN
     Route: 037
  2. INFUMORPH [Suspect]
     Indication: POST LAMINECTOMY SYNDROME
     Route: 037

REACTIONS (9)
  - Drug withdrawal syndrome [None]
  - Drug resistance [None]
  - Device malfunction [None]
  - Drug intolerance [None]
  - Chest discomfort [None]
  - Pain [None]
  - Oedema peripheral [None]
  - Diabetes mellitus [None]
  - Hypertension [None]
